FAERS Safety Report 5639527-3 (Version None)
Quarter: 2008Q1

REPORT INFORMATION
  Report Type: 
  Country: None (occurrence: None)
  Receive Date: 20080131
  Receipt Date: 20071020
  Transmission Date: 20080703
  Serious: No
  Sender: FDA-Public Use
  Company Number: 163-21880-07101215

PATIENT
  Age: 83 Year
  Sex: Male
  Weight: 72.5755 kg

DRUGS (9)
  1. REVLIMID [Suspect]
     Indication: MYELODYSPLASTIC SYNDROME
     Dosage: 10 MG, 1 IN 1 D, ORAL
     Route: 048
     Dates: start: 20070131, end: 20070201
  2. TRANSFUSIONS (BLOOD AND RELATED PRODUCTS) [Concomitant]
  3. PROZAC [Concomitant]
  4. TENORMIN [Concomitant]
  5. PROSCAR [Concomitant]
  6. LASIX [Concomitant]
  7. POTASSIUM (POTASSIUM) [Concomitant]
  8. NEURONTIN (POTASSIUM) [Concomitant]
  9. ASPIRIN TAB [Concomitant]

REACTIONS (5)
  - FATIGUE [None]
  - HAEMATOCRIT DECREASED [None]
  - HAEMOGLOBIN DECREASED [None]
  - MUSCLE SPASMS [None]
  - PARAESTHESIA [None]
